FAERS Safety Report 4691734-2 (Version None)
Quarter: 2005Q2

REPORT INFORMATION
  Report Type: 
  Country: None (occurrence: None)
  Receive Date: 20050616
  Receipt Date: 20050601
  Transmission Date: 20051028
  Serious: Yes (Disabling)
  Sender: FDA-Public Use
  Company Number: FR-BRISTOL-MYERS SQUIBB COMPANY-12995619

PATIENT
  Age: 56 Year
  Sex: Male

DRUGS (2)
  1. VASTEN [Suspect]
     Route: 048
     Dates: start: 20010501, end: 20020101
  2. HYTRINE [Concomitant]
     Route: 048

REACTIONS (1)
  - TENDON DISORDER [None]
